FAERS Safety Report 8623760-2 (Version None)
Quarter: 2012Q3

REPORT INFORMATION
  Report Type: 
  Country: None (occurrence: None)
  Receive Date: 20120827
  Receipt Date: 20120820
  Transmission Date: 20120928
  Serious: No
  Sender: FDA-Public Use
  Company Number: US-BAYER-2012-087206

PATIENT

DRUGS (3)
  1. TYLENOL [Concomitant]
  2. MOTRIN [Concomitant]
  3. ALEVE (CAPLET) [Suspect]
     Indication: TOOTHACHE
     Route: 048

REACTIONS (1)
  - TOOTHACHE [None]
